FAERS Safety Report 5289779-7 (Version None)
Quarter: 2007Q2

REPORT INFORMATION
  Report Type: 
  Country: None (occurrence: None)
  Receive Date: 20070406
  Receipt Date: 20070323
  Transmission Date: 20071010
  Serious: Yes (Other)
  Sender: FDA-Public Use
  Company Number: US-JNJFOC-20070306297

PATIENT
  Sex: Male
  Weight: 92.08 kg

DRUGS (3)
  1. REMICADE [Suspect]
     Indication: BEHCET'S SYNDROME
     Route: 042
  2. PREDNISONE TAB [Concomitant]
     Indication: BEHCET'S SYNDROME
  3. ANTIBIOTICS [Concomitant]

REACTIONS (1)
  - BLOOD URINE PRESENT [None]
